FAERS Safety Report 4455262-1 (Version None)
Quarter: 2004Q3

REPORT INFORMATION
  Report Type: 
  Country: None (occurrence: None)
  Receive Date: 20040921
  Receipt Date: 20040913
  Transmission Date: 20050211
  Serious: Yes (Other)
  Sender: FDA-Public Use
  Company Number: IE-MERCK-0409GBR00131

PATIENT
  Age: 62 Year
  Sex: Female

DRUGS (8)
  1. BISOPROLOL FUMARATE [Concomitant]
     Route: 065
  2. DOXAZOSIN MESYLATE [Concomitant]
     Route: 065
  3. EPROSARTAN [Concomitant]
     Route: 065
  4. FLUOXETINE HYDROCHLORIDE [Concomitant]
     Route: 065
  5. PANTOPRAZOLE SODIUM [Concomitant]
     Route: 065
  6. PRAVASTATIN SODIUM [Concomitant]
     Route: 065
  7. VIOXX [Suspect]
     Indication: ARTHRITIS
     Route: 048
     Dates: start: 20040618, end: 20040813
  8. VIOXX [Suspect]
     Indication: BACK PAIN
     Route: 048
     Dates: start: 20040618, end: 20040813

REACTIONS (2)
  - BRONCHOSPASM [None]
  - SOMNOLENCE [None]
